FAERS Safety Report 4313079-2 (Version None)
Quarter: 2004Q1

REPORT INFORMATION
  Report Type: 
  Country: None (occurrence: None)
  Receive Date: 20040304
  Receipt Date: 20040217
  Transmission Date: 20041129
  Serious: Yes (Hospitalization)
  Sender: FDA-Public Use
  Company Number: DE_040213027

PATIENT
  Age: 20 Year
  Sex: Female

DRUGS (4)
  1. ZYPREXA [Suspect]
     Indication: PSYCHOTIC DISORDER
     Dosage: 5 MG/DAY
     Dates: start: 20021126, end: 20031222
  2. MULTIVITAMIN [Concomitant]
  3. CLEXANE (HEPARIN-FRACTION, SODIUM SALT) [Concomitant]
  4. FORTINEL [Concomitant]

REACTIONS (3)
  - ANAEMIA [None]
  - RETICULOCYTE COUNT INCREASED [None]
  - WHITE BLOOD CELL COUNT DECREASED [None]
